FAERS Safety Report 6713340-8 (Version None)
Quarter: 2010Q2

REPORT INFORMATION
  Report Type: 
  Country: None (occurrence: None)
  Receive Date: 20100504
  Receipt Date: 20100422
  Transmission Date: 20101027
  Serious: Yes (Other)
  Sender: FDA-Public Use
  Company Number: 167-20484-09111584

PATIENT
  Sex: Male
  Weight: 0.74 kg

DRUGS (12)
  1. INNOHEP [Suspect]
     Indication: DRUG EXPOSURE DURING PREGNANCY
     Dosage: TRANSPLACENTAL
     Route: 064
     Dates: end: 19991223
  2. HYDRALAZINE HCL [Concomitant]
  3. MAGNESIUM SULFATE [Concomitant]
  4. BETAMETHASONE [Concomitant]
  5. RANITIDINE HCL [Concomitant]
  6. MAXOLON [Concomitant]
  7. ROPIVACAINE (ROPIVACAINE) [Concomitant]
  8. MIDAZOLAM HCL [Concomitant]
  9. ARAMINE (METARAMINOL TARTRATE) [Concomitant]
  10. BUPIVACAINE (BUPIVACAINE) [Concomitant]
  11. GENTAMYCIN SULPHATE (GENTAMICIN SULFATE) [Concomitant]
  12. SYNTOCINON [Concomitant]

REACTIONS (2)
  - MATERNAL DRUGS AFFECTING FOETUS [None]
  - PREMATURE BABY [None]
